FAERS Safety Report 13260096 (Version 1)
Quarter: 2017Q1

REPORT INFORMATION
  Report Type: Spontaneous
  Country: US (occurrence: US)
  Receive Date: 20170222
  Receipt Date: 20170222
  Transmission Date: 20170428
  Serious: Yes (Other)
  Sender: FDA-Public Use
  Company Number: US-TEVA-688456USA

PATIENT
  Sex: Female

DRUGS (2)
  1. AMPHETAMINE W/DEXTROAMPHETAMINE [Suspect]
     Active Substance: AMPHETAMINE SULFATE\DEXTROAMPHETAMINE
     Indication: ATTENTION DEFICIT/HYPERACTIVITY DISORDER
     Dosage: 10 MILLIGRAM IR
     Route: 065
  2. AMPHETAMINE W/DEXTROAMPHETAMINE [Suspect]
     Active Substance: AMPHETAMINE SULFATE\DEXTROAMPHETAMINE
     Dosage: 5 MILLIGRAM IR
     Route: 065

REACTIONS (8)
  - Thought blocking [Unknown]
  - Attention deficit/hyperactivity disorder [Unknown]
  - Adverse event [Unknown]
  - Nausea [Unknown]
  - Increased appetite [Unknown]
  - Drug ineffective [Unknown]
  - Urinary retention [Unknown]
  - Disturbance in social behaviour [Unknown]
